FAERS Safety Report 4694651-7 (Version None)
Quarter: 2005Q2

REPORT INFORMATION
  Report Type: 
  Country: None (occurrence: None)
  Receive Date: 20050620
  Receipt Date: 20030529
  Transmission Date: 20051028
  Serious: Yes (Death, Hospitalization)
  Sender: FDA-Public Use
  Company Number: GB-GLAXOSMITHKLINE-A0409927A

PATIENT
  Age: 70 Year
  Sex: Male

DRUGS (3)
  1. NAVELBINE [Suspect]
     Indication: NON-SMALL CELL LUNG CANCER
     Dosage: 25MGM2 PER DAY
     Route: 042
     Dates: start: 20030206, end: 20030327
  2. CISPLATIN [Suspect]
     Indication: NON-SMALL CELL LUNG CANCER
     Dosage: 15MGM2 PER DAY
     Route: 042
     Dates: start: 20030206, end: 20030403
  3. RADIOTHERAPY [Concomitant]

REACTIONS (18)
  - ANOREXIA [None]
  - ASTHENIA [None]
  - CHEST PAIN [None]
  - CHOKING [None]
  - CONSTIPATION [None]
  - COUGH [None]
  - CYANOSIS [None]
  - DISEASE PROGRESSION [None]
  - DYSPNOEA EXACERBATED [None]
  - FALL [None]
  - HYPOXIA [None]
  - ILL-DEFINED DISORDER [None]
  - LOWER RESPIRATORY TRACT INFECTION [None]
  - OESOPHAGEAL ACHALASIA [None]
  - PARAESTHESIA [None]
  - PLEURAL EFFUSION [None]
  - PNEUMONIA ASPIRATION [None]
  - PYREXIA [None]
